FAERS Safety Report 8131587-3 (Version None)
Quarter: 2012Q1

REPORT INFORMATION
  Report Type: 
  Country: None (occurrence: None)
  Receive Date: 20120103
  Receipt Date: 20110828
  Transmission Date: 20120608
  Serious: No
  Sender: FDA-Public Use
  Company Number: AE-2011-001184

PATIENT
  Age: 54 Year
  Sex: Male

DRUGS (8)
  1. PEGASYS [Concomitant]
  2. ENALAPRIL/HCL (VASERETIC) [Concomitant]
  3. LANTUS [Concomitant]
  4. SPIRONOLACTONE [Concomitant]
  5. RIBAVIRIN [Concomitant]
  6. FUROSEMIDE [Concomitant]
  7. HYDROCHLOROTHIAZIDE [Concomitant]
  8. INCIVEK [Suspect]
     Dosage: (3 IN 1 D),ORAL
     Route: 048
     Dates: start: 20110826

REACTIONS (1)
  - TREMOR [None]
